FAERS Safety Report 9322546 (Version 1)
Quarter: 2013Q2

REPORT INFORMATION
  Report Type: Spontaneous
  Country: CA (occurrence: CA)
  Receive Date: 20130531
  Receipt Date: 20130531
  Transmission Date: 20140414
  Serious: Yes (Hospitalization, Other)
  Sender: FDA-Public Use
  Company Number: CA-ASTRAZENECA-2013SE31559

PATIENT
  Age: 82 Year
  Sex: Male

DRUGS (3)
  1. ZOLADEX LA [Suspect]
     Indication: PROSTATE CANCER
     Route: 058
  2. ZOLADEX LA [Suspect]
     Indication: PROSTATE CANCER
     Route: 058
     Dates: start: 20130503
  3. ZOLADEX LA [Suspect]
     Indication: PROSTATE CANCER
     Route: 058

REACTIONS (3)
  - Intestinal obstruction [Recovered/Resolved]
  - Cardiac disorder [Recovered/Resolved]
  - Aneurysm [Recovered/Resolved]
